FAERS Safety Report 18983498 (Version 1)
Quarter: 2021Q1

REPORT INFORMATION
  Report Type: Spontaneous
  Country: US (occurrence: US)
  Receive Date: 20210309
  Receipt Date: 20210309
  Transmission Date: 20210420
  Serious: Yes (Hospitalization, Other)
  Sender: FDA-Public Use
  Company Number: US-TEVA-2021-US-1887759

PATIENT
  Age: 34 Year
  Sex: Female

DRUGS (1)
  1. TRIAMCINOLONE HEXACETONIDE [Suspect]
     Active Substance: TRIAMCINOLONE HEXACETONIDE
     Indication: ASCITES
     Dosage: 500MG
     Route: 033

REACTIONS (2)
  - Hyperglycaemia [Recovered/Resolved]
  - Adrenal insufficiency [Unknown]
